FAERS Safety Report 10644475 (Version 6)
Quarter: 2015Q3

REPORT INFORMATION
  Report Type: Spontaneous
  Country: US (occurrence: US)
  Receive Date: 20141210
  Receipt Date: 20150904
  Transmission Date: 20151125
  Serious: Yes (Hospitalization, Other)
  Sender: FDA-Public Use
  Company Number: US-GLAXOSMITHKLINE-US2014GSK033964

PATIENT
  Age: 68 Year
  Sex: Female

DRUGS (4)
  1. ADVAIR DISKUS [Suspect]
     Active Substance: FLUTICASONE PROPIONATE\SALMETEROL XINAFOATE
     Dosage: UNK UNK, U
  2. VENTOLIN [Suspect]
     Active Substance: ALBUTEROL SULFATE
     Indication: ASTHMA
     Dosage: UNK, U
     Dates: start: 2000
  3. VENTOLIN [Suspect]
     Active Substance: ALBUTEROL SULFATE
     Indication: CHRONIC OBSTRUCTIVE PULMONARY DISEASE
     Dosage: UNK
  4. ADVAIR DISKUS [Suspect]
     Active Substance: FLUTICASONE PROPIONATE\SALMETEROL XINAFOATE
     Indication: CHRONIC OBSTRUCTIVE PULMONARY DISEASE
     Dosage: UNK, U
     Dates: start: 2000

REACTIONS (4)
  - Hospitalisation [Unknown]
  - Knee operation [Recovered/Resolved]
  - Chronic obstructive pulmonary disease [Unknown]
  - Patella fracture [Unknown]

NARRATIVE: CASE EVENT DATE: 201508
